FAERS Safety Report 6233699-8 (Version None)
Quarter: 2009Q2

REPORT INFORMATION
  Report Type: 
  Country: None (occurrence: None)
  Receive Date: 20090617
  Receipt Date: 20090608
  Transmission Date: 20091009
  Serious: Yes (Hospitalization)
  Sender: FDA-Public Use
  Company Number: CA-AMGEN-KDL350314

PATIENT
  Sex: Female
  Weight: 38.6 kg

DRUGS (2)
  1. ENBREL [Suspect]
     Indication: RHEUMATOID ARTHRITIS
     Route: 058
     Dates: start: 20040513, end: 20080301
  2. METHOTREXATE [Concomitant]
     Route: 058
     Dates: start: 20060101

REACTIONS (5)
  - BACK PAIN [None]
  - DIFFUSE LARGE B-CELL LYMPHOMA [None]
  - HYPOAESTHESIA [None]
  - PNEUMONIA [None]
  - SENSORY LOSS [None]
